FAERS Safety Report 8901502 (Version 2)
Quarter: 2013Q1

REPORT INFORMATION
  Report Type: Spontaneous
  Country: US (occurrence: US)
  Receive Date: 20121109
  Receipt Date: 20130128
  Transmission Date: 20140127
  Serious: Yes (Other)
  Sender: FDA-Public Use
  Company Number: US-BAYER-2012-116814

PATIENT
  Age: 27 Year
  Sex: Female
  Weight: 52.61 kg

DRUGS (1)
  1. MIRENA [Suspect]
     Indication: CONTRACEPTION
     Dosage: 20 MCG/24HR, CONT
     Route: 015
     Dates: start: 20120910, end: 20121101

REACTIONS (4)
  - Uterine perforation [None]
  - Device dislocation [None]
  - Pain [None]
  - Device difficult to use [None]
